FAERS Safety Report 13258972 (Version 1)
Quarter: 2017Q1

REPORT INFORMATION
  Report Type: Spontaneous
  Country: US (occurrence: US)
  Receive Date: 20170222
  Receipt Date: 20170222
  Transmission Date: 20170428
  Serious: Yes (Other)
  Sender: FDA-Public Use
  Company Number: US-ALEXION-A201701385

PATIENT
  Sex: Female

DRUGS (1)
  1. STRENSIQ [Suspect]
     Active Substance: ASFOTASE ALFA
     Indication: HYPOPHOSPHATASIA
     Route: 058

REACTIONS (20)
  - Blood bilirubin decreased [Unknown]
  - Laboratory test abnormal [Unknown]
  - Blood urea increased [Unknown]
  - Mean platelet volume decreased [Unknown]
  - Vitamin B6 decreased [Unknown]
  - Blood alkaline phosphatase increased [Unknown]
  - Blood chloride increased [Unknown]
  - Mean cell haemoglobin decreased [Unknown]
  - Haematemesis [Unknown]
  - Haemoglobin decreased [Unknown]
  - Blood glucose increased [Unknown]
  - Aspartate aminotransferase increased [Unknown]
  - White blood cell count increased [Unknown]
  - Human chorionic gonadotropin decreased [Unknown]
  - Blood uric acid increased [Unknown]
  - Haematochezia [Unknown]
  - Haematocrit decreased [Unknown]
  - Red blood cell count decreased [Unknown]
  - Neutrophil count increased [Unknown]
  - Blood alkaline phosphatase increased [Unknown]

NARRATIVE: CASE EVENT DATE: 20160309
